FAERS Safety Report 19697179 (Version 2)
Quarter: 2021Q3

REPORT INFORMATION
  Report Type: Spontaneous
  Country: US (occurrence: US)
  Receive Date: 20210813
  Receipt Date: 20210821
  Transmission Date: 20211014
  Serious: Yes (Hospitalization)
  Sender: FDA-Public Use
  Company Number: US-DRREDDYS-LIT/USA/21/0138821

PATIENT
  Age: 49 Year
  Sex: Male

DRUGS (11)
  1. KETAMINE [Suspect]
     Active Substance: KETAMINE
     Indication: MUCOSAL INFLAMMATION
     Route: 048
  2. OXYCODONE [Suspect]
     Active Substance: OXYCODONE
     Indication: MUCOSAL INFLAMMATION
     Dosage: 30?45MG MEDD (MORPHINE EQUIVALENT DAILY DOSE) VIA GASTROSTOMY TUBE EVERY 4 HOURS AS NEEDED FOR MODER
  3. KETAMINE [Suspect]
     Active Substance: KETAMINE
     Dosage: SOLUTION DELIVERED INTRA?NASALLY FOR TOPICAL APPLICATION TO THE BILATERAL SINUSES BY AN ATOMISER AND
     Route: 042
  4. KETAMINE [Suspect]
     Active Substance: KETAMINE
     Dosage: 5MG PER NOSTRIL
     Route: 045
  5. HYDROMORPHONE [Suspect]
     Active Substance: HYDROMORPHONE
     Indication: MUCOSAL INFLAMMATION
     Route: 042
  6. KETAMINE [Suspect]
     Active Substance: KETAMINE
     Dosage: 10MG PER NOSTRIL
     Route: 045
  7. KETAMINE [Suspect]
     Active Substance: KETAMINE
     Dosage: 5MG PER NOSTRIL
     Route: 045
  8. SODIUM CHLORIDE. [Suspect]
     Active Substance: SODIUM CHLORIDE
     Indication: MUCOSAL INFLAMMATION
  9. DEXAMETHASONE SODIUM PHOSPHATE INJECTION, 4 MG/ML [Suspect]
     Active Substance: DEXAMETHASONE SODIUM PHOSPHATE
     Indication: MUCOSAL INFLAMMATION
     Route: 042
  10. SODIUM BICARBONATE. [Suspect]
     Active Substance: SODIUM BICARBONATE
     Indication: MUCOSAL INFLAMMATION
  11. SODIUM MONOFLUOROPHOSPHATE. [Suspect]
     Active Substance: SODIUM MONOFLUOROPHOSPHATE
     Indication: MUCOSAL INFLAMMATION
     Route: 048

REACTIONS (1)
  - Drug ineffective [Unknown]
